FAERS Safety Report 25287620 (Version 1)
Quarter: 2025Q2

REPORT INFORMATION
  Report Type: Spontaneous
  Country: US (occurrence: None)
  Receive Date: 20250508
  Receipt Date: 20250508
  Transmission Date: 20250716
  Serious: Yes (Other)
  Sender: FDA-CTU
  Company Number: None

PATIENT
  Age: 46 Year
  Sex: Female
  Weight: 72 kg

DRUGS (8)
  1. METHYLPREDNISOLONE [Suspect]
     Active Substance: METHYLPREDNISOLONE
     Indication: Skin burning sensation
     Dosage: OTHER QUANTITY : 2 TABLET(S);?FREQUENCY : 3 TIMES A DAY;?
     Route: 048
     Dates: start: 20250502, end: 20250507
  2. OXYCODONE [Suspect]
     Active Substance: OXYCODONE
  3. CYCLOBENZAPRINE HYDROCHLORIDE [Concomitant]
     Active Substance: CYCLOBENZAPRINE HYDROCHLORIDE
  4. Turmeric Liver Detox [Concomitant]
  5. Oil of oregano liquid [Concomitant]
  6. CANNABIDIOL\HERBALS [Concomitant]
     Active Substance: CANNABIDIOL\HERBALS
  7. Elderberry liquid drops [Concomitant]
  8. Lion mane vegan capsule [Concomitant]

REACTIONS (12)
  - Taste disorder [None]
  - Parosmia [None]
  - Product formulation issue [None]
  - Nausea [None]
  - Headache [None]
  - Blood pressure increased [None]
  - Insomnia [None]
  - Crying [None]
  - Dizziness [None]
  - Decreased appetite [None]
  - Constipation [None]
  - Abnormal faeces [None]

NARRATIVE: CASE EVENT DATE: 20250502
